FAERS Safety Report 9678237 (Version 2)
Quarter: 2013Q4

REPORT INFORMATION
  Report Type: Report from Study
  Country: CA (occurrence: CA)
  Receive Date: 20131108
  Receipt Date: 20131108
  Transmission Date: 20140711
  Serious: Yes (Other)
  Sender: FDA-Public Use
  Company Number: CA-JNJFOC-20121014319

PATIENT
  Age: 46 Year
  Sex: Female
  Weight: 81.65 kg

DRUGS (6)
  1. REMICADE [Suspect]
     Indication: CROHN^S DISEASE
     Route: 042
     Dates: start: 2011
  2. REMICADE [Suspect]
     Indication: CROHN^S DISEASE
     Route: 042
  3. REMICADE [Suspect]
     Indication: CROHN^S DISEASE
     Dosage: FREQUENCY: ONCE EVERY 6 TO 8 WEEKS
     Route: 042
     Dates: start: 201210
  4. REMICADE [Suspect]
     Indication: COLITIS ULCERATIVE
     Route: 042
  5. REMICADE [Suspect]
     Indication: COLITIS ULCERATIVE
     Dosage: FREQUENCY: ONCE EVERY 6 TO 8 WEEKS
     Route: 042
     Dates: start: 201210
  6. REMICADE [Suspect]
     Indication: COLITIS ULCERATIVE
     Route: 042
     Dates: start: 2011

REACTIONS (5)
  - Bipolar disorder [Unknown]
  - Fibromyalgia [Unknown]
  - Drug ineffective [Unknown]
  - Myalgia [Unknown]
  - Pain in extremity [Unknown]
